FAERS Safety Report 22520270 (Version 1)
Quarter: 2023Q2

REPORT INFORMATION
  Report Type: Spontaneous
  Country: CN (occurrence: CN)
  Receive Date: 20230605
  Receipt Date: 20230605
  Transmission Date: 20230722
  Serious: Yes (Other)
  Sender: FDA-Public Use
  Company Number: None

PATIENT
  Age: 71 Year
  Sex: Female
  Weight: 51 kg

DRUGS (6)
  1. CYCLOPHOSPHAMIDE [Suspect]
     Active Substance: CYCLOPHOSPHAMIDE
     Indication: Neoplasm malignant
     Dosage: 0.8 G, QD, DILUTED WITH 500 ML OF 0.9% SODIUM CHLORIDE INJECTION
     Route: 041
     Dates: start: 20230520, end: 20230520
  2. CYCLOPHOSPHAMIDE [Suspect]
     Active Substance: CYCLOPHOSPHAMIDE
     Indication: Chemotherapy
  3. SODIUM CHLORIDE [Suspect]
     Active Substance: SODIUM CHLORIDE
     Indication: Medication dilution
     Dosage: (DOSAGE FORM: INJECTION), 0.9% 500 ML, QD, USED TO DILUTE 0.8 G CYCLOPHOSPHAMIDE
     Route: 041
     Dates: start: 20230520, end: 20230520
  4. SODIUM CHLORIDE [Suspect]
     Active Substance: SODIUM CHLORIDE
     Dosage: (DOSAGE FORM: INJECTION) 0.9% 60 ML, QD, USED TO DILUTE 0.30 MG PACLITAXEL (ALBUMIN BOUND)
     Route: 041
     Dates: start: 20230520, end: 20230520
  5. PACLITAXEL [Suspect]
     Active Substance: PACLITAXEL
     Indication: Neoplasm malignant
     Dosage: 0.30 G, QD, DILUTED WITH 60 ML OF 0.9% SODIUM CHLORIDE INJECTION
     Route: 041
     Dates: start: 20230520, end: 20230520
  6. PACLITAXEL [Suspect]
     Active Substance: PACLITAXEL
     Indication: Chemotherapy

REACTIONS (2)
  - Peripheral nerve injury [Recovered/Resolved]
  - Hypoaesthesia [Recovered/Resolved]

NARRATIVE: CASE EVENT DATE: 20230520
